FAERS Safety Report 16098727 (Version 2)
Quarter: 2019Q2

REPORT INFORMATION
  Report Type: Spontaneous
  Country: KR (occurrence: KR)
  Receive Date: 20190321
  Receipt Date: 20190402
  Transmission Date: 20190711
  Serious: Yes (Death, Hospitalization, Other)
  Sender: FDA-Public Use
  Company Number: KR-009507513-1903KOR007219

PATIENT
  Sex: Male

DRUGS (22)
  1. NORPIN INJECTION [Concomitant]
     Dosage: 20 MILLILITER, QD
     Dates: start: 20190219, end: 20190219
  2. LYRICA [Concomitant]
     Active Substance: PREGABALIN
     Dosage: 2 CAPSULE, REPORTED AS 13 DAYS
     Route: 048
     Dates: start: 20190218, end: 20190218
  3. TARGIN [Concomitant]
     Active Substance: NALOXONE HYDROCHLORIDE\OXYCODONE HYDROCHLORIDE
     Dosage: 2 TABLETS
     Route: 048
     Dates: start: 20190218, end: 20190218
  4. TAZOCIN (PIPERACILLIN SODIUM (+) TAZOBACTAM SODIUM) [Concomitant]
     Active Substance: PIPERACILLIN SODIUM\TAZOBACTAM SODIUM
     Dosage: 4.5 GRAM, QD, REPORTED AS 7 DAYS
     Dates: start: 20190219, end: 20190219
  5. KEYTRUDA [Suspect]
     Active Substance: PEMBROLIZUMAB
     Indication: LUNG CARCINOMA CELL TYPE UNSPECIFIED STAGE 0
     Dosage: UNK
     Dates: start: 20190226
  6. TACENOL [Concomitant]
     Dosage: 8 HOURS EXTENDED RELEASE TABLET
     Route: 048
     Dates: start: 20190218, end: 20190219
  7. XARELTO [Concomitant]
     Active Substance: RIVAROXABAN
     Dosage: 1 TABLET, REPORTED AS 10 DAYS
     Dates: start: 20190222, end: 20190223
  8. FENTORA [Concomitant]
     Active Substance: FENTANYL CITRATE
     Dosage: 1 TABLET, REPORTED AS 7 DAYS
     Route: 002
     Dates: start: 20190226, end: 20190226
  9. TAZOCIN (PIPERACILLIN SODIUM (+) TAZOBACTAM SODIUM) [Concomitant]
     Active Substance: PIPERACILLIN SODIUM\TAZOBACTAM SODIUM
     Dosage: 9 GRAM, QD; REPORTED AS 6 DAYS
     Dates: start: 20190219, end: 20190219
  10. TAZOCIN (PIPERACILLIN SODIUM (+) TAZOBACTAM SODIUM) [Concomitant]
     Active Substance: PIPERACILLIN SODIUM\TAZOBACTAM SODIUM
     Dosage: 13.5 GRAM, QD; REPORTED AS 2 DAYS
     Dates: start: 20190225, end: 20190225
  11. LYRICA [Concomitant]
     Active Substance: PREGABALIN
     Dosage: 1 CAPSULE, REPORTED AS 2 DAYS
     Route: 048
     Dates: start: 20190222, end: 20190222
  12. TACOPEN [Concomitant]
     Dosage: 3 CAPSULES, REPORTED AS 6 DAYS
     Route: 048
     Dates: start: 20190220, end: 20190221
  13. MIDAZOLAM BUKWANG [Concomitant]
     Dosage: 1 INJECTION, STRENGHT 3 MG/3 ML
     Dates: start: 20190222, end: 20190222
  14. TAMIPOOL [Concomitant]
     Active Substance: VITAMINS
     Dosage: 1 INJECTION, REPORTED AS 8 DAYS
     Dates: start: 20190218, end: 20190218
  15. CONBLOC [Concomitant]
     Dosage: 1 TABLET, REPORTED AS 4 DAYS
     Route: 048
     Dates: start: 20190218, end: 20190218
  16. ATACAND [Concomitant]
     Active Substance: CANDESARTAN CILEXETIL
     Dosage: 1 TABLET, REPORTED AS 2 DAYS
     Route: 048
     Dates: start: 20190217, end: 20190217
  17. XARELTO [Concomitant]
     Active Substance: RIVAROXABAN
     Dosage: 1 TABLET, REPORTED AS 4 DAYS
     Route: 048
     Dates: start: 20190217, end: 20190217
  18. TACOPEN [Concomitant]
     Dosage: 2 CAPSULES, REPORTED AS 4 DAYS
     Route: 048
     Dates: start: 20190219, end: 20190219
  19. POFOL [Concomitant]
     Active Substance: PROPOFOL
     Dosage: 1 INJECTION, REPORTED AS 2 DAYS
     Dates: start: 20190219, end: 20190219
  20. SODIUM CHLORIDE. [Concomitant]
     Active Substance: SODIUM CHLORIDE
     Dosage: 1 INJECTION, REPORTED AS 7 DAYS
     Dates: start: 20190218, end: 20190218
  21. PANTOLOC [Concomitant]
     Active Substance: PANTOPRAZOLE SODIUM
     Dosage: 1 INJECTION, REPOTED AS 2 DAYS
     Dates: start: 20190222, end: 20190222
  22. TACOPEN [Concomitant]
     Dosage: CAPSULES, REPORTED AS 2 DAYS
     Route: 048
     Dates: start: 20190219, end: 20190220

REACTIONS (3)
  - General physical condition decreased [Unknown]
  - Death [Fatal]
  - Oxygen therapy [Unknown]

NARRATIVE: CASE EVENT DATE: 2019
